FAERS Safety Report 23096606 (Version 1)
Quarter: 2023Q4

REPORT INFORMATION
  Report Type: Spontaneous
  Country: US (occurrence: None)
  Receive Date: 20231022
  Receipt Date: 20231022
  Transmission Date: 20240109
  Serious: Yes (Life-Threatening, Hospitalization)
  Sender: FDA-Public Use
  Company Number: None

PATIENT
  Sex: Male
  Weight: 64.35 kg

DRUGS (2)
  1. XELODA [Suspect]
     Active Substance: CAPECITABINE
     Indication: Colon cancer stage II
     Dates: start: 20231016, end: 20231020
  2. XELODA [Concomitant]
     Active Substance: CAPECITABINE
     Dates: start: 20231016, end: 20231020

REACTIONS (1)
  - Cardiotoxicity [None]

NARRATIVE: CASE EVENT DATE: 20231020
